FAERS Safety Report 12583941 (Version 2)
Quarter: 2016Q3

REPORT INFORMATION
  Report Type: Report from Study
  Country: US (occurrence: US)
  Receive Date: 20160722
  Receipt Date: 20160804
  Transmission Date: 20161109
  Serious: Yes (Death, Hospitalization, Other)
  Sender: FDA-Public Use
  Company Number: US-GILEAD-2016-0224734

PATIENT
  Age: 51 Year
  Sex: Male
  Weight: 91.16 kg

DRUGS (18)
  1. LANTUS [Concomitant]
     Active Substance: INSULIN GLARGINE
  2. LASIX [Concomitant]
     Active Substance: FUROSEMIDE
  3. PRAVACHOL [Concomitant]
     Active Substance: PRAVASTATIN SODIUM
  4. NORVASC [Concomitant]
     Active Substance: AMLODIPINE BESYLATE
  5. AMBRISENTAN [Suspect]
     Active Substance: AMBRISENTAN
     Indication: PULMONARY ARTERIAL HYPERTENSION
     Dosage: 10 MG, UNK
     Route: 065
     Dates: start: 20111221
  6. COUMADINE [Concomitant]
     Active Substance: WARFARIN SODIUM
  7. AMBRISENTAN [Suspect]
     Active Substance: AMBRISENTAN
     Indication: MYOCARDIAL ISCHAEMIA
  8. AMBRISENTAN [Suspect]
     Active Substance: AMBRISENTAN
     Indication: LEFT VENTRICULAR DYSFUNCTION
  9. OXYGEN. [Concomitant]
     Active Substance: OXYGEN
  10. GARAMYCIN [Concomitant]
     Active Substance: GENTAMICIN SULFATE
  11. REVATIO [Concomitant]
     Active Substance: SILDENAFIL CITRATE
  12. PHOSLO [Concomitant]
     Active Substance: CALCIUM ACETATE
  13. NEURONTIN [Concomitant]
     Active Substance: GABAPENTIN
  14. MIRALAX [Concomitant]
     Active Substance: POLYETHYLENE GLYCOL 3350
  15. AMBRISENTAN [Suspect]
     Active Substance: AMBRISENTAN
     Indication: SLEEP APNOEA SYNDROME
  16. AMARYL [Concomitant]
     Active Substance: GLIMEPIRIDE
  17. SYNTHROID [Concomitant]
     Active Substance: LEVOTHYROXINE SODIUM
  18. TREPROSTINIL [Concomitant]
     Active Substance: TREPROSTINIL

REACTIONS (2)
  - Pulmonary hypertension [Fatal]
  - Cardiac arrest [Fatal]

NARRATIVE: CASE EVENT DATE: 20160527
